FAERS Safety Report 5842656-2 (Version None)
Quarter: 2008Q3

REPORT INFORMATION
  Report Type: 
  Country: None (occurrence: None)
  Receive Date: 20080812
  Receipt Date: 20080731
  Transmission Date: 20090109
  Serious: Yes (Death, Other)
  Sender: FDA-Public Use
  Company Number: US-ELI_LILLY_AND_COMPANY-US200807006465

PATIENT
  Sex: Female

DRUGS (1)
  1. FORTEO [Suspect]
     Indication: OSTEOPOROSIS
     Dosage: UNK, UNK
     Dates: start: 20070101

REACTIONS (8)
  - ABDOMINAL DISTENSION [None]
  - ASCITES [None]
  - BACK PAIN [None]
  - GASTRIC CANCER [None]
  - HEPATIC NEOPLASM MALIGNANT [None]
  - HEPATIC PAIN [None]
  - PANCREATIC CARCINOMA [None]
  - RIB FRACTURE [None]
